FAERS Safety Report 7102860-2 (Version None)
Quarter: 2010Q4

REPORT INFORMATION
  Report Type: 
  Country: None (occurrence: None)
  Receive Date: 20101108
  Receipt Date: 20101025
  Transmission Date: 20110411
  Serious: Yes (Death, Hospitalization)
  Sender: FDA-Public Use
  Company Number: MSTR-NO-1006S-0237

PATIENT
  Age: 61 Year
  Sex: Male

DRUGS (2)
  1. METASTRON [Suspect]
     Indication: METASTATIC PAIN
     Dosage: 121 MBQ, SINGLE DOSE, I.V.
     Route: 042
     Dates: start: 20090109, end: 20090109
  2. DOCETAXEL [Suspect]

REACTIONS (1)
  - INTERSTITIAL LUNG DISEASE [None]
